APPROVED DRUG PRODUCT: JASCAYD
Active Ingredient: NERANDOMILAST
Strength: 9MG
Dosage Form/Route: TABLET;ORAL
Application: N218764 | Product #001
Applicant: BOEHRINGER INGELHEIM PHARMACEUTICALS INC
Approved: Oct 7, 2025 | RLD: Yes | RS: No | Type: RX

PATENTS:
Patent 11813266 | Expires: Oct 22, 2038
Patent 11406638 | Expires: Oct 22, 2038
Patent 11813266 | Expires: Oct 22, 2038
Patent 11406638 | Expires: Oct 22, 2038
Patent 9802954 | Expires: Feb 19, 2034
Patent 8754073 | Expires: Nov 26, 2029
Patent 8609670 | Expires: Aug 23, 2032

EXCLUSIVITY:
Code: I-979 | Date: Dec 19, 2028
Code: NCE | Date: Oct 7, 2030